FAERS Safety Report 9719155 (Version 1)
Quarter: 2013Q4

REPORT INFORMATION
  Report Type: Spontaneous
  Country: US (occurrence: US)
  Receive Date: 20131127
  Receipt Date: 20131127
  Transmission Date: 20140711
  Serious: Yes (Other)
  Sender: FDA-Public Use
  Company Number: PHEH2013US024219

PATIENT
  Sex: Female

DRUGS (3)
  1. METHYLPHENIDATE [Suspect]
     Dosage: 1 DF, BID (20 MG)
     Dates: start: 1992
  2. METHYLPHENIDATE [Suspect]
     Dosage: 1 DF, QD (20 MG)
  3. METHYLPHENIDATE [Suspect]
     Dosage: 1 DF, QD (5 MG)

REACTIONS (14)
  - Dyspnoea [Unknown]
  - Gastrooesophageal reflux disease [Unknown]
  - Sinusitis [Unknown]
  - Food allergy [Unknown]
  - Mycotic allergy [Unknown]
  - Cognitive disorder [Unknown]
  - Polyneuropathy [Unknown]
  - Breath odour [Unknown]
  - Myoclonus [Unknown]
  - Fatigue [Unknown]
  - Erythema [Unknown]
  - Urticaria [Unknown]
  - Rash [Unknown]
  - Drug withdrawal syndrome [Unknown]
